FAERS Safety Report 9287565 (Version 2)
Quarter: 2013Q3

REPORT INFORMATION
  Report Type: Spontaneous
  Country: US (occurrence: US)
  Receive Date: 20130514
  Receipt Date: 20130822
  Transmission Date: 20140515
  Serious: No
  Sender: FDA-Public Use
  Company Number: US-009507513-1305USA004608

PATIENT
  Sex: Female

DRUGS (4)
  1. VICTRELIS [Suspect]
     Dosage: 200 MG
  2. REBETOL [Suspect]
     Dosage: UNKNOWN
  3. PEGASYS [Suspect]
  4. METFORMIN [Concomitant]

REACTIONS (2)
  - Red blood cell count decreased [Unknown]
  - Drug ineffective [Unknown]
